FAERS Safety Report 13930816 (Version 1)
Quarter: 2017Q3

REPORT INFORMATION
  Report Type: Spontaneous
  Country: AU (occurrence: AU)
  Receive Date: 20170901
  Receipt Date: 20170901
  Transmission Date: 20171127
  Serious: Yes (Other)
  Sender: FDA-Public Use
  Company Number: AU-IMPAX LABORATORIES, INC-2017-IPXL-02541

PATIENT
  Age: 44 Year
  Sex: Male

DRUGS (2)
  1. MINOCYCLINE HYDROCHLORIDE. [Suspect]
     Active Substance: MINOCYCLINE HYDROCHLORIDE
     Indication: ROSACEA
     Dosage: 50 MG, BID
     Route: 048
  2. MYCOPHENOLATE SODIUM [Concomitant]
     Active Substance: MYCOPHENOLATE SODIUM
     Indication: SYSTEMIC SCLERODERMA
     Dosage: 1080 MG MORNING, 720 MG NIGHT
     Route: 065

REACTIONS (2)
  - Angiodermatitis [Recovered/Resolved with Sequelae]
  - Vein discolouration [Not Recovered/Not Resolved]
